FAERS Safety Report 7214597-X (Version None)
Quarter: 2010Q4

REPORT INFORMATION
  Report Type: 
  Country: None (occurrence: None)
  Receive Date: 20101126
  Receipt Date: 20100701
  Transmission Date: 20110411
  Serious: Yes (Other)
  Sender: FDA-Public Use
  Company Number: CIP10000413

PATIENT
  Age: 65 Year
  Sex: Female

DRUGS (10)
  1. ACTONEL [Suspect]
     Dosage: ORAL
     Route: 048
  2. FOSAMAX [Suspect]
     Indication: OSTEOPOROSIS
     Dosage: 70 MG ONCE WEEKLY, ORAL
     Route: 048
     Dates: start: 20001205, end: 20080801
  3. ASPIRIN [Concomitant]
  4. ATENOLOL [Concomitant]
  5. RISPERDAL [Concomitant]
  6. NAMENDA [Concomitant]
  7. LOVASTATIN [Concomitant]
  8. PRILOSEC [Concomitant]
  9. FLUOXETINE [Concomitant]
  10. ALPRAZOLAM [Concomitant]

REACTIONS (14)
  - BLOOD CALCIUM [None]
  - CELLULITIS [None]
  - DENTAL CARIES [None]
  - JAW DISORDER [None]
  - JAW FRACTURE [None]
  - ORAL CAVITY FISTULA [None]
  - OSTEOMYELITIS [None]
  - OSTEONECROSIS OF JAW [None]
  - PAIN IN JAW [None]
  - PATHOLOGICAL FRACTURE [None]
  - PRIMARY SEQUESTRUM [None]
  - PURULENT DISCHARGE [None]
  - TOOTH ABSCESS [None]
  - TOOTH LOSS [None]
